FAERS Safety Report 21233022 (Version 1)
Quarter: 2022Q3

REPORT INFORMATION
  Report Type: Spontaneous
  Country: GB (occurrence: GB)
  Receive Date: 20220819
  Receipt Date: 20220819
  Transmission Date: 20221027
  Serious: Yes (Other)
  Sender: FDA-Public Use
  Company Number: GB-002147023-NVSC2022GB177989

PATIENT
  Sex: Male

DRUGS (2)
  1. MYCOPHENOLATE MOFETIL [Suspect]
     Active Substance: MYCOPHENOLATE MOFETIL
     Indication: Product used for unknown indication
     Dosage: UNK,FREQUENCY : 2 , FREQUENCY TIME : 1 DAYS, MYCOPHENOLATE MOFETIL (MANUFACTURER UNKNOWN) 750 MG
     Route: 065
  2. TACROLIMUS [Suspect]
     Active Substance: TACROLIMUS
     Indication: Product used for unknown indication
     Dosage: UNK, FREQUENCY : 2 , FREQUENCY TIME : 1 DAYS, ADOPORT (TACROLIMUS) 1 MG
     Route: 065

REACTIONS (1)
  - Neoplasm malignant [Unknown]
